FAERS Safety Report 4746682-6 (Version None)
Quarter: 2005Q3

REPORT INFORMATION
  Report Type: 
  Country: None (occurrence: None)
  Receive Date: 20050815
  Receipt Date: 20050805
  Transmission Date: 20060218
  Serious: Yes (Other)
  Sender: FDA-Public Use
  Company Number: DEWYE885205AUG05

PATIENT
  Age: 17 Year
  Sex: Female

DRUGS (1)
  1. LEIOS [Suspect]
     Dosage: 1 TABLET
     Route: 048

REACTIONS (1)
  - HEPATITIS [None]
